FAERS Safety Report 4691973-0 (Version None)
Quarter: 2005Q2

REPORT INFORMATION
  Report Type: 
  Country: None (occurrence: None)
  Receive Date: 20050616
  Receipt Date: 20050616
  Transmission Date: 20051028
  Serious: Yes (Life-Threatening, Hospitalization)
  Sender: FDA-Public Use
  Company Number: None

PATIENT
  Age: 56 Year
  Sex: Female
  Weight: 65.7716 kg

DRUGS (2)
  1. PREMARIN [Suspect]
     Indication: HYSTERECTOMY
     Dosage: 1   DALY  ORAL
     Route: 048
  2. PREMARIN [Suspect]
     Dosage: 1     DAILY   ORAL
     Route: 048

REACTIONS (1)
  - BLADDER CANCER [None]
